FAERS Safety Report 8804059 (Version 2)
Quarter: 2013Q3

REPORT INFORMATION
  Report Type: Spontaneous
  Country: US (occurrence: US)
  Receive Date: 20120924
  Receipt Date: 20130703
  Transmission Date: 20140515
  Serious: Yes (Hospitalization)
  Sender: FDA-Public Use
  Company Number: US-GLAXOSMITHKLINE-A0994524A

PATIENT
  Sex: Female

DRUGS (2)
  1. ADVAIR [Suspect]
     Indication: PRODUCT USED FOR UNKNOWN INDICATION
     Route: 055
     Dates: start: 20110902
  2. VENTOLIN [Suspect]
     Indication: PRODUCT USED FOR UNKNOWN INDICATION
     Dates: start: 20120918

REACTIONS (4)
  - Hospitalisation [Unknown]
  - Laryngeal operation [Unknown]
  - Speech disorder [Unknown]
  - Dysphonia [Unknown]
